FAERS Safety Report 25136303 (Version 1)
Quarter: 2025Q1

REPORT INFORMATION
  Report Type: Spontaneous
  Country: IT (occurrence: IT)
  Receive Date: 20250328
  Receipt Date: 20250328
  Transmission Date: 20250409
  Serious: Yes (Hospitalization)
  Sender: ADC THERAPEUTICS
  Company Number: IT-BIOVITRUM-2025-IT-003887

PATIENT
  Age: 86 Year
  Sex: Female

DRUGS (1)
  1. ZYNLONTA [Suspect]
     Active Substance: LONCASTUXIMAB TESIRINE-LPYL
     Indication: Product used for unknown indication
     Dates: start: 202410

REACTIONS (2)
  - Urinary tract infection [Unknown]
  - Oedema peripheral [Recovered/Resolved]
